FAERS Safety Report 14468938 (Version 5)
Quarter: 2018Q3

REPORT INFORMATION
  Report Type: Spontaneous
  Country: US (occurrence: US)
  Receive Date: 20180131
  Receipt Date: 20180814
  Transmission Date: 20181010
  Serious: Yes (Other)
  Sender: FDA-Public Use
  Company Number: US-PFIZER INC-2018042928

PATIENT
  Age: 79 Year
  Sex: Male

DRUGS (6)
  1. LOSARTAN. [Concomitant]
     Active Substance: LOSARTAN
     Indication: HYPERTENSION
     Dosage: 50 MG, 1X/DAY
     Route: 048
     Dates: start: 2017
  2. SIMVASTATIN. [Concomitant]
     Active Substance: SIMVASTATIN
     Dosage: 20 MG, 1X/DAY (1 TAB AT BEDTIME)
     Dates: start: 2003
  3. VIAGRA [Suspect]
     Active Substance: SILDENAFIL CITRATE
     Indication: SEXUAL DYSFUNCTION
     Dosage: 1/2 TABLET BY MOUTH 3 TO 4 TIMES A MONTH
     Route: 048
  4. VIAGRA [Suspect]
     Active Substance: SILDENAFIL CITRATE
     Indication: ERECTILE DYSFUNCTION
     Dosage: 50 MG, 1 HOUR PRIOR TO SEXUAL ACTIVITY, 2 TO 4 TIMES PER MONTH
     Route: 048
     Dates: start: 2014
  5. ASPIRIN. [Concomitant]
     Active Substance: ASPIRIN
     Dosage: 81 MG, 1X/DAY
     Route: 048
     Dates: start: 2003
  6. MULTIVITAMINS [Concomitant]
     Active Substance: VITAMINS

REACTIONS (7)
  - Gastrooesophageal reflux disease [Unknown]
  - Weight decreased [Unknown]
  - Sleep apnoea syndrome [Recovering/Resolving]
  - Oropharyngeal pain [Unknown]
  - Dry mouth [Recovering/Resolving]
  - Cough [Unknown]
  - Dysphonia [Recovering/Resolving]

NARRATIVE: CASE EVENT DATE: 201708
